FAERS Safety Report 18311485 (Version 1)
Quarter: 2020Q3

REPORT INFORMATION
  Report Type: Spontaneous
  Country: US (occurrence: US)
  Receive Date: 20200925
  Receipt Date: 20200925
  Transmission Date: 20201103
  Serious: Yes (Other)
  Sender: FDA-Public Use
  Company Number: US-TEVA-2020-US-1831711

PATIENT
  Sex: Female

DRUGS (1)
  1. ZOVIA [Suspect]
     Active Substance: ETHINYL ESTRADIOL\ETHYNODIOL DIACETATE
     Dosage: I HAVE BEEN TAKING ZOVIA 1/35 FOR 10 YEARS
     Route: 065

REACTIONS (1)
  - Coeliac disease [Unknown]
